FAERS Safety Report 24387811 (Version 1)
Quarter: 2024Q4

REPORT INFORMATION
  Report Type: Report from Study
  Country: US (occurrence: US)
  Receive Date: 20241002
  Receipt Date: 20241002
  Transmission Date: 20250115
  Serious: Yes (Other)
  Sender: UCB
  Company Number: US-UCBSA-2024049127

PATIENT
  Sex: Female

DRUGS (18)
  1. BRIVARACETAM [Suspect]
     Active Substance: BRIVARACETAM
     Indication: Product used for unknown indication
     Dosage: 100 MILLIGRAM, 2X/DAY (BID)
     Route: 048
     Dates: start: 20240916
  2. ACETAMINOPHEN [Concomitant]
     Active Substance: ACETAMINOPHEN
     Indication: Pain
     Dosage: 500 MILLIGRAM, 3X/DAY (TID)
     Route: 048
     Dates: start: 20240913
  3. AMIODARONE [Concomitant]
     Active Substance: AMIODARONE
     Indication: Atrial fibrillation
     Dosage: 200 MILLIGRAM, ONCE DAILY (QD)
     Route: 048
     Dates: start: 20240921
  4. ELIQUIS [Concomitant]
     Active Substance: APIXABAN
     Indication: Atrial fibrillation
     Dosage: 5 MILLIGRAM, 2X/DAY (BID)
     Route: 048
     Dates: start: 20240913
  5. FIBERCON [Concomitant]
     Active Substance: CALCIUM POLYCARBOPHIL
     Indication: Laxative supportive care
     Dosage: ONE TIME A DAY
     Route: 048
     Dates: start: 20240917
  6. FUROSEMIDE [Concomitant]
     Active Substance: FUROSEMIDE
     Indication: Cardiac failure congestive
     Dosage: 40 MILLIGRAM, 2X/DAY (BID)
     Route: 048
     Dates: start: 20240913
  7. FUROSEMIDE [Concomitant]
     Active Substance: FUROSEMIDE
     Dosage: UNK
     Dates: start: 20240921
  8. GLIMEPIRIDE [Concomitant]
     Active Substance: GLIMEPIRIDE
     Indication: Diabetes mellitus
     Dosage: 1 MILLIGRAM, ONCE DAILY (QD)
     Route: 048
     Dates: start: 20240914
  9. HYDROCORTISONE [Concomitant]
     Active Substance: HYDROCORTISONE
     Indication: Chronic obstructive pulmonary disease
     Dosage: 10 MILLIGRAM, ONCE DAILY (QD)
     Dates: start: 20240913
  10. HYDROCORTISONE [Concomitant]
     Active Substance: HYDROCORTISONE
     Dosage: 5 MILLIGRAM, ONCE DAILY (QD)
     Route: 048
     Dates: start: 20240913
  11. ALBUTEROL SULFATE;IPRATROPIUM BROMIDE [Concomitant]
     Indication: Dyspnoea
     Dosage: 0.5-2.5 (3) MG/3ML EVERY 4 HOURS
     Dates: start: 20240913
  12. ALBUTEROL SULFATE;IPRATROPIUM BROMIDE [Concomitant]
     Dosage: 0.5-2.5 (3) MG/3ML,TID
     Route: 048
     Dates: start: 20240913
  13. MELATONIN [Concomitant]
     Active Substance: MELATONIN
     Indication: Insomnia
     Dosage: EVERY 25 HOURS
     Route: 048
     Dates: start: 20240913
  14. METOPROLOL SUCCINATE [Concomitant]
     Active Substance: METOPROLOL SUCCINATE
     Indication: Hypertension
     Dosage: 1 DOSAGE FORM, ONCE DAILY (QD)
     Route: 048
     Dates: start: 20240914
  15. VITAMINS [Concomitant]
     Active Substance: VITAMINS
     Indication: Product used for unknown indication
     Dosage: 1 DOSAGE FORM, ONCE DAILY (QD)
     Route: 048
     Dates: start: 20240914
  16. OMEPRAZOLE [Concomitant]
     Active Substance: OMEPRAZOLE
     Indication: Gastrooesophageal reflux disease
     Dosage: 1 DOSAGE FORM, ONCE DAILY (QD)
     Route: 048
     Dates: start: 20240914
  17. VALPROIC ACID [Concomitant]
     Active Substance: VALPROIC ACID
     Indication: Seizure
     Dosage: 15 MILLILITER, 3X/DAY (TID)
     Route: 048
     Dates: start: 20240913
  18. VALSARTAN [Concomitant]
     Active Substance: VALSARTAN
     Indication: Hypertension
     Dosage: 45 MILLIGRAM, ONCE DAILY (QD)
     Route: 048
     Dates: start: 20240914

REACTIONS (31)
  - Peptic ulcer [Unknown]
  - Idiopathic generalised epilepsy [Unknown]
  - Encephalopathy [Unknown]
  - Atrial fibrillation [Unknown]
  - Cardiac failure [Unknown]
  - Chronic kidney disease [Unknown]
  - Type 2 diabetes mellitus [Unknown]
  - Acute respiratory failure [Unknown]
  - Hip arthroplasty [Unknown]
  - Bradycardia [Unknown]
  - Malnutrition [Unknown]
  - Insomnia [Unknown]
  - Chronic obstructive pulmonary disease [Unknown]
  - Hypertensive heart disease [Unknown]
  - Hyperlipidaemia [Unknown]
  - Supraventricular tachycardia [Unknown]
  - Decubitus ulcer [Unknown]
  - Gastrooesophageal reflux disease [Unknown]
  - Liver disorder [Unknown]
  - Oedema [Unknown]
  - Nicotine dependence [Unknown]
  - Pain [Unknown]
  - Atrioventricular block [Unknown]
  - Hyponatraemia [Unknown]
  - Primary hyperaldosteronism [Unknown]
  - Bone density abnormal [Unknown]
  - Gait disturbance [Unknown]
  - Anaemia [Unknown]
  - Cardiac assistance device user [Unknown]
  - Pulmonary mass [Unknown]
  - Adrenal disorder [Unknown]
